FAERS Safety Report 23873328 (Version 1)
Quarter: 2024Q2

REPORT INFORMATION
  Report Type: Other
  Country: US (occurrence: None)
  Receive Date: 20240520
  Receipt Date: 20240520
  Transmission Date: 20240716
  Serious: No
  Sender: FDA-Public Use
  Company Number: US-ROCHE-3566831

PATIENT
  Age: 37 Year
  Sex: Female

DRUGS (1)
  1. OCREVUS [Suspect]
     Active Substance: OCRELIZUMAB
     Indication: Relapsing multiple sclerosis
     Dosage: DATE OF MOST RECENT INFUSION: 16/FEB/2022?DATE OF NEXT SCHEDULED INFUSION: 16/AUG/2022?DOT: 2024-04-
     Route: 065
     Dates: start: 20190204

REACTIONS (1)
  - COVID-19 [Unknown]
